FAERS Safety Report 15939757 (Version 2)
Quarter: 2019Q1

REPORT INFORMATION
  Report Type: Spontaneous
  Country: US (occurrence: US)
  Receive Date: 20190208
  Receipt Date: 20190226
  Transmission Date: 20190417
  Serious: Yes (Other)
  Sender: FDA-Public Use
  Company Number: US-ASTRAZENECA-2018SF13524

PATIENT
  Sex: Female

DRUGS (24)
  1. NAPROXEN. [Concomitant]
     Active Substance: NAPROXEN
  2. MELOXICAM. [Concomitant]
     Active Substance: MELOXICAM
  3. DEXILANT [Suspect]
     Active Substance: DEXLANSOPRAZOLE
     Route: 048
     Dates: start: 20150423
  4. GABAPENTIN. [Concomitant]
     Active Substance: GABAPENTIN
  5. HYDROCODONE BITARTRATE AND ACETAMINOPHEN [Concomitant]
     Active Substance: ACETAMINOPHEN\HYDROCODONE BITARTRATE
  6. CLINDAMYCIN. [Concomitant]
     Active Substance: CLINDAMYCIN
  7. TRAMADOL. [Concomitant]
     Active Substance: TRAMADOL
  8. NEXIUM [Suspect]
     Active Substance: ESOMEPRAZOLE MAGNESIUM
     Route: 048
     Dates: start: 20080923
  9. NEXIUM 24HR [Suspect]
     Active Substance: ESOMEPRAZOLE MAGNESIUM
     Route: 048
     Dates: start: 200611, end: 201702
  10. PREVACID [Suspect]
     Active Substance: LANSOPRAZOLE
     Route: 065
     Dates: start: 200611, end: 201702
  11. PRILOSEC OTC [Suspect]
     Active Substance: OMEPRAZOLE MAGNESIUM
     Route: 048
     Dates: start: 200611, end: 201702
  12. CLONAZEPAM. [Concomitant]
     Active Substance: CLONAZEPAM
  13. CRESTOR [Concomitant]
     Active Substance: ROSUVASTATIN CALCIUM
  14. METFORMIN [Concomitant]
     Active Substance: METFORMIN HYDROCHLORIDE
  15. FUROSEMIDE. [Concomitant]
     Active Substance: FUROSEMIDE
  16. NOVOLOG [Concomitant]
     Active Substance: INSULIN ASPART
  17. DEXILANT [Suspect]
     Active Substance: DEXLANSOPRAZOLE
     Route: 065
     Dates: start: 20150423, end: 20170226
  18. LISINOPRIL. [Concomitant]
     Active Substance: LISINOPRIL
  19. NEXIUM [Suspect]
     Active Substance: ESOMEPRAZOLE MAGNESIUM
     Route: 048
     Dates: start: 20061103, end: 20150224
  20. LAMICTAL [Concomitant]
     Active Substance: LAMOTRIGINE
  21. NEXIUM [Suspect]
     Active Substance: ESOMEPRAZOLE MAGNESIUM
     Route: 048
     Dates: start: 200611, end: 201702
  22. DEXILANT [Suspect]
     Active Substance: DEXLANSOPRAZOLE
     Route: 065
     Dates: start: 200611, end: 201702
  23. TRICOR [Concomitant]
     Active Substance: FENOFIBRATE
  24. MONTELUKAST [Concomitant]
     Active Substance: MONTELUKAST SODIUM

REACTIONS (2)
  - Chronic kidney disease [Unknown]
  - Renal injury [Unknown]
